FAERS Safety Report 10596599 (Version 2)
Quarter: 2014Q4

REPORT INFORMATION
  Report Type: Spontaneous
  Country: JP (occurrence: JP)
  Receive Date: 20141120
  Receipt Date: 20141211
  Transmission Date: 20150529
  Serious: No
  Sender: FDA-Public Use
  Company Number: JP-SUCAMPO AG-SPI201400848

PATIENT
  Age: 51 Year
  Sex: Female
  Weight: 42 kg

DRUGS (7)
  1. PROMAC [Concomitant]
     Active Substance: NITROFURANTOIN
     Indication: GASTRIC ULCER
     Dosage: 75 MG, BID
     Route: 048
     Dates: start: 2011
  2. PURSENNID [Concomitant]
     Active Substance: SENNOSIDES A AND B
     Indication: CONSTIPATION
     Dosage: 60 MG, QD
     Route: 048
     Dates: start: 2011
  3. AMITIZA [Suspect]
     Active Substance: LUBIPROSTONE
     Indication: CONSTIPATION
     Dosage: 24 MCG, QD
     Route: 048
     Dates: start: 20141105, end: 20141105
  4. DIART [Concomitant]
     Active Substance: AZOSEMIDE
     Dosage: 30 MG, QD
     Route: 048
  5. EXJADE [Concomitant]
     Active Substance: DEFERASIROX
     Dosage: 125MG, 500MG
     Route: 048
  6. PROTECADIN [Concomitant]
     Active Substance: LAFUTIDINE
     Indication: GASTRIC ULCER
     Dosage: 10 MG, QD
     Route: 048
     Dates: start: 2011
  7. NEORAL [Concomitant]
     Active Substance: CYCLOSPORINE
     Dosage: 150 MG, BID
     Route: 048

REACTIONS (2)
  - Dyspnoea [Recovered/Resolved]
  - Diarrhoea [Recovered/Resolved]

NARRATIVE: CASE EVENT DATE: 20141105
